FAERS Safety Report 6817548-2 (Version None)
Quarter: 2010Q2

REPORT INFORMATION
  Report Type: 
  Country: None (occurrence: None)
  Receive Date: 20100630
  Receipt Date: 20100624
  Transmission Date: 20101027
  Serious: Yes (Death)
  Sender: FDA-Public Use
  Company Number: 2010US002502

PATIENT
  Age: 41 Year
  Sex: Male

DRUGS (6)
  1. PROGRAF [Suspect]
     Indication: RENAL TRANSPLANT
     Dosage: 8 MG,
     Dates: start: 20080624
  2. MYCOPHENOLATE MOFETIL [Concomitant]
  3. PREDNISOLONE [Concomitant]
  4. LOVASTATIN [Concomitant]
  5. OMEPRAZOLE [Concomitant]
  6. TRIMETOPRIM (TRIMETHOPRIM) [Concomitant]

REACTIONS (1)
  - RESPIRATORY FAILURE [None]
